FAERS Safety Report 8145718-2 (Version None)
Quarter: 2012Q1

REPORT INFORMATION
  Report Type: 
  Country: None (occurrence: None)
  Receive Date: 20120217
  Receipt Date: 20120203
  Transmission Date: 20120608
  Serious: Yes (Life-Threatening, Hospitalization, Disabling, Other)
  Sender: FDA-Public Use
  Company Number: US-PFIZER INC-2011021565

PATIENT
  Sex: Male

DRUGS (22)
  1. BLINDED COLLAGENASE CLOSTRIDIUM HISTOLYTICUM [Suspect]
     Dosage: 0.58 MG, 1X/DAY
     Route: 026
     Dates: start: 20101229, end: 20101229
  2. GUAIFENESIN [Concomitant]
     Indication: HYPERSENSITIVITY
     Dosage: 600 MG, DAILY
     Dates: start: 20080103
  3. BLINDED NO SUBJECT DRUG [Suspect]
     Dosage: 0.58 MG, 1X/DAY
     Route: 026
     Dates: start: 20101110, end: 20101110
  4. BLINDED COLLAGENASE CLOSTRIDIUM HISTOLYTICUM [Suspect]
     Dosage: 0.58 MG, 1X/DAY
     Route: 026
     Dates: start: 20101228, end: 20101228
  5. MONTELUKAST [Concomitant]
     Indication: ASTHMA
     Dosage: 10 MG, DAILY
     Dates: start: 20010101
  6. XANAX [Suspect]
     Indication: ANXIETY
     Dosage: 1.5 MG, UNK
     Dates: start: 20010101, end: 20110116
  7. BLINDED NO SUBJECT DRUG [Suspect]
     Indication: PEYRONIE'S DISEASE
     Dosage: 0.58 MG, 1X/DAY
     Route: 026
     Dates: start: 20101108, end: 20101108
  8. PLACEBO [Suspect]
     Dosage: 0.58 MG, 1X/DAY
     Route: 026
     Dates: start: 20101229, end: 20101229
  9. LANSOPRAZOLE [Concomitant]
     Dosage: 30 MG, DAILY
  10. CETIRIZINE [Concomitant]
     Indication: HYPERSENSITIVITY
     Dosage: 10 MG, DAILY
     Dates: start: 20060103
  11. BLINDED COLLAGENASE CLOSTRIDIUM HISTOLYTICUM [Suspect]
     Indication: PEYRONIE'S DISEASE
     Dosage: 0.58 MG, 1X/DAY
     Route: 026
     Dates: start: 20101108, end: 20101108
  12. BLINDED COLLAGENASE CLOSTRIDIUM HISTOLYTICUM [Suspect]
     Dosage: 0.58 MG, 1X/DAY
     Route: 026
     Dates: start: 20101110, end: 20101110
  13. BLINDED PLACEBO [Suspect]
     Dosage: 0.58 MG, 1X/DAY
     Route: 026
     Dates: start: 20101228, end: 20101228
  14. ZOLPIDEM [Concomitant]
     Indication: INSOMNIA
     Dosage: 10 MG, UNK
     Dates: start: 20010101, end: 20110116
  15. LANSOPRAZOLE [Concomitant]
     Indication: GASTROOESOPHAGEAL REFLUX DISEASE
     Dosage: 60 MG, DAILY
     Dates: start: 20060103
  16. GALENIC /FLUTICASONE/SALMETEROL/ [Concomitant]
     Indication: ASTHMA
     Dosage: 500MCG/50MCG, DAILY
     Dates: start: 20020112
  17. BLINDED NO SUBJECT DRUG [Suspect]
     Dosage: 0.58 MG, 1X/DAY
     Route: 026
     Dates: start: 20101228, end: 20101228
  18. ATORVASTATIN [Concomitant]
     Indication: HYPERLIPIDAEMIA
     Dosage: 20 MG, DAILY
     Dates: start: 20021202
  19. MOMETASONE [Concomitant]
     Indication: HYPERSENSITIVITY
     Dosage: 200 UG, 1X/DAY
     Dates: start: 20010101
  20. BLINDED PLACEBO [Suspect]
     Dosage: 0.58 MG, 1X/DAY
     Route: 026
     Dates: start: 20101110, end: 20101110
  21. BLINDED PLACEBO [Suspect]
     Indication: PEYRONIE'S DISEASE
     Dosage: 0.58 MG, 1X/DAY
     Route: 026
     Dates: start: 20101108, end: 20101108
  22. BLINDED NO SUBJECT DRUG [Suspect]
     Dosage: 0.58 MG, 1X/DAY
     Route: 026
     Dates: start: 20101229, end: 20101229

REACTIONS (3)
  - DRUG WITHDRAWAL SYNDROME [None]
  - COMPRESSION FRACTURE [None]
  - GRAND MAL CONVULSION [None]
